FAERS Safety Report 9627079 (Version 1)
Quarter: 2013Q4

REPORT INFORMATION
  Report Type: Spontaneous
  Country: US (occurrence: None)
  Receive Date: 20131011
  Receipt Date: 20131011
  Transmission Date: 20140711
  Serious: Yes (Other)
  Sender: FDA-Public Use
  Company Number: 2013P1019879

PATIENT
  Age: 25 Year
  Sex: Male

DRUGS (4)
  1. LITHIUM [Suspect]
     Indication: SCHIZOAFFECTIVE DISORDER
  2. RISPERIDONE [Suspect]
     Indication: SCHIZOAFFECTIVE DISORDER
  3. ARIPIPRAZOLE [Suspect]
     Indication: SCHIZOAFFECTIVE DISORDER
  4. ASENAPINE [Suspect]
     Indication: SCHIZOAFFECTIVE DISORDER
     Route: 060

REACTIONS (12)
  - Drug ineffective [None]
  - Sexual dysfunction [None]
  - Obsessive thoughts [None]
  - Magical thinking [None]
  - Paranoia [None]
  - Hallucination, visual [None]
  - Restlessness [None]
  - Anxiety [None]
  - Panic reaction [None]
  - Irritability [None]
  - Akathisia [None]
  - Drug interaction [None]
